FAERS Safety Report 6211076-3 (Version None)
Quarter: 2009Q2

REPORT INFORMATION
  Report Type: 
  Country: None (occurrence: None)
  Receive Date: 20090602
  Receipt Date: 20071120
  Transmission Date: 20091009
  Serious: Yes (Other)
  Sender: FDA-Public Use
  Company Number: US-ASTRAZENECA-2007UW19320

PATIENT
  Age: 40 Year
  Sex: Female

DRUGS (23)
  1. SEROQUEL [Suspect]
     Indication: BIPOLAR DISORDER
     Route: 048
     Dates: start: 19990101
  2. SEROQUEL [Suspect]
     Indication: DEPRESSION
     Route: 048
     Dates: start: 19990101
  3. SEROQUEL [Suspect]
     Dosage: 25 MG DISPENSED
     Route: 048
     Dates: start: 20011203
  4. SEROQUEL [Suspect]
     Dosage: 25 MG DISPENSED
     Route: 048
     Dates: start: 20011203
  5. SEROQUEL [Suspect]
     Dosage: 100 MG DISPENSED
     Route: 048
     Dates: start: 20060202
  6. SEROQUEL [Suspect]
     Dosage: 100 MG DISPENSED
     Route: 048
     Dates: start: 20060202
  7. RISPERDAL [Concomitant]
     Dates: start: 19990101
  8. RISPERDAL [Concomitant]
     Dosage: 3 MG DISPENSED
     Dates: start: 20000912
  9. DEPAKOTE [Concomitant]
     Dosage: 500 MG DISPENSED
     Dates: start: 20000128
  10. ZYPREXA [Concomitant]
     Dosage: 15 MG DISPENSED
     Dates: start: 20011221
  11. CITALOPRAM HYDROBROMIDE [Concomitant]
     Dosage: 20 MG DISPENSED
     Dates: start: 20060202
  12. LOVASTATIN [Concomitant]
     Indication: BLOOD CHOLESTEROL
     Dates: start: 20051031
  13. EFFEXOR [Concomitant]
     Dates: start: 20011203
  14. LIPITOR [Concomitant]
     Dates: start: 20040506
  15. NEURONTIN [Concomitant]
     Dates: start: 20040727
  16. NEURONTIN [Concomitant]
     Dates: start: 20070201
  17. CYCLOBENZAPRINE [Concomitant]
     Dosage: 10 MG DISPENSED
     Dates: start: 20000212
  18. SONATA [Concomitant]
     Dosage: 10 MG DISPENSED
     Dates: start: 20000327
  19. TOPAMAX [Concomitant]
     Dates: start: 20010802
  20. TOPAMAX [Concomitant]
     Dates: start: 20011003
  21. TOPAMAX [Concomitant]
     Dates: start: 20060104
  22. GABAPENTIN [Concomitant]
     Dosage: 100 MG TO 300 MG DISPENSED
     Dates: start: 20070201
  23. GABAPENTIN [Concomitant]
     Dates: start: 20070910

REACTIONS (2)
  - DIABETIC NEUROPATHY [None]
  - TYPE 2 DIABETES MELLITUS [None]
